FAERS Safety Report 15439662 (Version 1)
Quarter: 2018Q3

REPORT INFORMATION
  Report Type: Spontaneous
  Country: US (occurrence: US)
  Receive Date: 20180928
  Receipt Date: 20180928
  Transmission Date: 20181010
  Serious: No
  Sender: FDA-Public Use
  Company Number: US-PFIZER INC-2018388953

PATIENT
  Sex: Male

DRUGS (2)
  1. NARDIL [Suspect]
     Active Substance: PHENELZINE SULFATE
     Dosage: 15 MG, 2X/DAY (15 MG IN THE MORNING AND 15 MG AT NIGHT)
  2. NARDIL [Suspect]
     Active Substance: PHENELZINE SULFATE
     Dosage: 75 MG, DAILY (75 MG DOSE WHICH WAS 5 TABLETS A DAY)

REACTIONS (8)
  - Thinking abnormal [Unknown]
  - Bradyphrenia [Unknown]
  - Asthenia [Unknown]
  - Abdominal pain upper [Unknown]
  - Intentional product misuse [Unknown]
  - Lethargy [Unknown]
  - Decreased appetite [Unknown]
  - Depression [Unknown]
